FAERS Safety Report 10654518 (Version 1)
Quarter: 2014Q4

REPORT INFORMATION
  Report Type: Spontaneous
  Country: US (occurrence: None)
  Receive Date: 20141215
  Receipt Date: 20141215
  Transmission Date: 20150529
  Serious: Yes (Life-Threatening, Hospitalization, Other)
  Sender: FDA-Public Use
  Company Number: None

PATIENT
  Age: 79 Year
  Sex: Female
  Weight: 59.88 kg

DRUGS (1)
  1. XARELTO [Suspect]
     Active Substance: RIVAROXABAN
     Indication: ATRIAL FIBRILLATION
     Dosage: 1 PILL, ONCE DAILY
     Route: 048
     Dates: start: 20130701, end: 20140327

REACTIONS (2)
  - Chest pain [None]
  - Pericardial haemorrhage [None]

NARRATIVE: CASE EVENT DATE: 20140327
